FAERS Safety Report 7062224-7 (Version None)
Quarter: 2010Q4

REPORT INFORMATION
  Report Type: 
  Country: None (occurrence: None)
  Receive Date: 20101022
  Receipt Date: 20100708
  Transmission Date: 20110411
  Serious: Yes (Hospitalization)
  Sender: FDA-Public Use
  Company Number: DL2010-0583

PATIENT
  Age: 23 Year
  Sex: Female

DRUGS (5)
  1. MIFEPRISTONE (MIFEPREX) [Suspect]
     Indication: ABORTION INDUCED
     Dosage: 200 MG, ORAL
     Route: 048
     Dates: start: 20100604
  2. MISOPROSTOL [Suspect]
     Dosage: 800 MCG, BUCCAL; 800 MCG, RECTAL; 200 MCG, ORAL(EVERY 4 HOURS)
     Route: 002
     Dates: start: 20100605
  3. MISOPROSTOL [Suspect]
     Dosage: 800 MCG, BUCCAL; 800 MCG, RECTAL; 200 MCG, ORAL(EVERY 4 HOURS)
     Route: 002
     Dates: start: 20100612
  4. MISOPROSTOL [Suspect]
     Dosage: 800 MCG, BUCCAL; 800 MCG, RECTAL; 200 MCG, ORAL(EVERY 4 HOURS)
     Route: 002
     Dates: start: 20100612
  5. DOXYCYCLINE [Concomitant]

REACTIONS (2)
  - ABORTION INCOMPLETE [None]
  - MENORRHAGIA [None]
